FAERS Safety Report 5674819-3 (Version None)
Quarter: 2008Q1

REPORT INFORMATION
  Report Type: 
  Country: None (occurrence: None)
  Receive Date: 20080320
  Receipt Date: 20080312
  Transmission Date: 20080703
  Serious: Yes (Hospitalization)
  Sender: FDA-Public Use
  Company Number: US-ELI_LILLY_AND_COMPANY-US200802006356

PATIENT
  Sex: Male
  Weight: 116.55 kg

DRUGS (9)
  1. BYETTA [Suspect]
     Dosage: 5 UG, 2/D
     Route: 058
     Dates: start: 20070927, end: 20071027
  2. BYETTA [Suspect]
     Dosage: 10 UG, 2/D
     Route: 058
     Dates: start: 20071027
  3. TRICOR [Concomitant]
  4. ZETIA [Concomitant]
  5. ASPIRIN [Concomitant]
     Dosage: UNK, UNKNOWN
  6. FUROSEMIDE [Concomitant]
     Dosage: UNK, UNKNOWN
  7. DILTIAZEM [Concomitant]
     Dosage: UNK, UNKNOWN
  8. NIASPAN [Concomitant]
     Dosage: UNK, UNKNOWN
  9. METOPROLOL TARTRATE [Concomitant]
     Dosage: UNK, UNKNOWN

REACTIONS (4)
  - ABDOMINAL PAIN [None]
  - CHOLECYSTECTOMY [None]
  - PANCREATITIS [None]
  - WEIGHT DECREASED [None]
